FAERS Safety Report 7440977-3 (Version None)
Quarter: 2011Q2

REPORT INFORMATION
  Report Type: 
  Country: None (occurrence: None)
  Receive Date: 20110427
  Receipt Date: 20110411
  Transmission Date: 20111010
  Serious: No
  Sender: FDA-Public Use
  Company Number: JP-ABBOTT-11P-087-0712387-00

PATIENT
  Sex: Male
  Weight: 73 kg

DRUGS (13)
  1. ARGINAID WATER [Suspect]
     Indication: PRODUCT USED FOR UNKNOWN INDICATION
     Route: 048
     Dates: start: 20101210, end: 20101210
  2. LIDOCAINE [Concomitant]
     Indication: EPIDURAL ANAESTHESIA
     Route: 008
     Dates: start: 20101210
  3. LIDOCAINE [Concomitant]
     Dosage: 5 ML-20 ML/HR
     Route: 008
     Dates: start: 20101210, end: 20101210
  4. PROPOFOL [Concomitant]
     Indication: INDUCTION OF ANAESTHESIA
     Dosage: 25 ML/H
  5. SEVOFLURANE [Suspect]
     Indication: MAINTENANCE OF ANAESTHESIA
     Route: 055
     Dates: start: 20101210, end: 20101210
  6. INFUSION SOLUTION [Concomitant]
     Indication: PRODUCT USED FOR UNKNOWN INDICATION
     Dosage: 2900 ML DAILY
  7. PROPOFOL [Concomitant]
     Indication: ANAESTHESIA
  8. ROCURONIUM BROMIDE [Concomitant]
     Indication: HYPOTONIA
     Route: 042
     Dates: start: 20101210
  9. AZELNIDIPINE [Suspect]
     Indication: ESSENTIAL HYPERTENSION
     Route: 048
     Dates: start: 20101210
  10. OLMESARTAN MEDOXOMIL [Concomitant]
     Indication: ESSENTIAL HYPERTENSION
     Route: 048
     Dates: start: 20101210
  11. BLOOD INFUSION [Concomitant]
     Indication: PRODUCT USED FOR UNKNOWN INDICATION
  12. NITROUS OXIDE [Concomitant]
     Indication: GENERAL ANAESTHESIA
     Route: 055
     Dates: start: 20101210, end: 20101210
  13. OXYGEN [Concomitant]
     Indication: MAINTENANCE OF ANAESTHESIA

REACTIONS (3)
  - HEART RATE DECREASED [None]
  - ELECTROCARDIOGRAM QT PROLONGED [None]
  - HYPOTENSION [None]
